FAERS Safety Report 18381370 (Version 2)
Quarter: 2020Q4

REPORT INFORMATION
  Report Type: Spontaneous
  Country: GR (occurrence: GR)
  Receive Date: 20201014
  Receipt Date: 20201020
  Transmission Date: 20210114
  Serious: Yes (Other)
  Sender: FDA-Public Use
  Company Number: GR-PFIZER INC-2020392604

PATIENT
  Age: 70 Year
  Sex: Female

DRUGS (2)
  1. CEFTAZIDIM [Concomitant]
     Active Substance: CEFTAZIDIME
     Dosage: 2 G, 3X/DAY
  2. LINEZOLID. [Suspect]
     Active Substance: LINEZOLID
     Dosage: 600 MG, 2X/DAY

REACTIONS (2)
  - Hepatic failure [Recovered/Resolved]
  - Lactic acidosis [Recovered/Resolved]
